FAERS Safety Report 9278323 (Version 1)
Quarter: 2013Q2

REPORT INFORMATION
  Report Type: Spontaneous
  Country: US (occurrence: US)
  Receive Date: 20130508
  Receipt Date: 20130508
  Transmission Date: 20140414
  Serious: No
  Sender: FDA-Public Use
  Company Number: US-B.I. PHARMACEUTICALS,INC./RIDGEFIELD-2013-BI-12539BP

PATIENT
  Age: 72 Year
  Sex: Female
  Weight: 90 kg

DRUGS (13)
  1. SPIRIVA [Suspect]
     Indication: CHRONIC OBSTRUCTIVE PULMONARY DISEASE
     Dosage: 18 MCG
     Route: 055
     Dates: start: 201212
  2. HYOSCYAMINE [Concomitant]
     Indication: OESOPHAGEAL SPASM
     Dosage: 0.125 MG
     Route: 048
     Dates: start: 201209
  3. VALIUM [Concomitant]
     Indication: STRESS
     Dosage: 15 MG
     Route: 048
     Dates: start: 2008
  4. OMEPRAZOLE [Concomitant]
     Indication: GASTRIC DISORDER
     Dosage: 40 MG
     Route: 048
     Dates: start: 2012
  5. PERFOROMIST [Concomitant]
     Indication: CHRONIC OBSTRUCTIVE PULMONARY DISEASE
     Dosage: (INHALATION AEROSOL) STRENGTH: 2MCG/2ML; DAILY DOSE: 4MCG/4ML
     Route: 055
     Dates: start: 201211
  6. MIRALAX [Concomitant]
     Indication: CONSTIPATION
     Dosage: (POWDER) STRENGTH: 2 CAPS FULL;
     Route: 048
     Dates: start: 2012
  7. LIPITOR [Concomitant]
     Indication: BLOOD CHOLESTEROL INCREASED
     Dosage: 80 MG
     Route: 048
     Dates: start: 2012
  8. BUDESONIDE [Concomitant]
     Indication: CHRONIC OBSTRUCTIVE PULMONARY DISEASE
     Dosage: 0.5 MG
     Route: 055
     Dates: start: 201211
  9. ZONEGRAN [Concomitant]
     Indication: GRAND MAL CONVULSION
     Dosage: 400 MG
     Route: 048
  10. ZOLOFT [Concomitant]
     Indication: DEPRESSION
     Dosage: 200 MG
     Route: 048
     Dates: start: 2011
  11. BABY ASPIRIN [Concomitant]
     Indication: PROPHYLAXIS
     Dosage: 81 MG
     Route: 048
  12. ALBUTEROL [Concomitant]
     Indication: CHRONIC OBSTRUCTIVE PULMONARY DISEASE
     Dosage: (INHALATION AEROSOL) STRENGTH: 0.083%; DAILY DOSE: 0.166%
     Route: 055
     Dates: start: 201211
  13. LAMICTAL [Concomitant]
     Indication: GRAND MAL CONVULSION
     Dosage: 600 MG
     Route: 048

REACTIONS (4)
  - Dyspnoea [Recovered/Resolved]
  - Constipation [Not Recovered/Not Resolved]
  - Heart rate irregular [Recovered/Resolved]
  - Product quality issue [Recovered/Resolved]
